FAERS Safety Report 5478677-1 (Version None)
Quarter: 2007Q4

REPORT INFORMATION
  Report Type: 
  Country: None (occurrence: None)
  Receive Date: 20071005
  Receipt Date: 20070927
  Transmission Date: 20080405
  Serious: Yes (Death, Other)
  Sender: FDA-Public Use
  Company Number: FR-ABBOTT-07P-056-0417911-00

PATIENT
  Sex: Male

DRUGS (6)
  1. SEVORANE LIQUID FOR INHALATION [Suspect]
     Indication: GENERAL ANAESTHESIA
     Route: 055
     Dates: start: 20070903, end: 20070903
  2. SUXAMETHONIUM [Suspect]
     Indication: GENERAL ANAESTHESIA
     Route: 042
     Dates: start: 20070903, end: 20070903
  3. PROPOFOL [Suspect]
     Indication: GENERAL ANAESTHESIA
     Route: 042
     Dates: start: 20070903, end: 20070903
  4. SUFENTANIL CITRATE [Suspect]
     Indication: GENERAL ANAESTHESIA
     Route: 042
     Dates: start: 20070903, end: 20070903
  5. ALDACTAZIDE [Concomitant]
     Indication: HYPERTENSION
  6. RILMENIDINE [Concomitant]
     Indication: HYPERTENSION

REACTIONS (6)
  - ANAPHYLACTOID SHOCK [None]
  - BLOOD PRESSURE IMMEASURABLE [None]
  - LEUKOCYTOSIS [None]
  - PILOERECTION [None]
  - PULSE ABSENT [None]
  - VENTRICULAR FIBRILLATION [None]
